FAERS Safety Report 15566269 (Version 2)
Quarter: 2020Q3

REPORT INFORMATION
  Report Type: Report from Study
  Country: IT (occurrence: IT)
  Receive Date: 20181030
  Receipt Date: 20190205
  Transmission Date: 20201104
  Serious: Yes (Death, Hospitalization)
  Sender: FDA-Public Use
  Company Number: IT-JNJFOC-20181038744

PATIENT
  Age: 64 Year
  Sex: Female

DRUGS (8)
  1. TRABECTEDIN [Suspect]
     Active Substance: TRABECTEDIN
     Indication: UTERINE CANCER
     Route: 042
     Dates: start: 20180214, end: 20180214
  2. OMEPRAZOLE. [Concomitant]
     Active Substance: OMEPRAZOLE
     Route: 048
  3. TRABECTEDIN [Suspect]
     Active Substance: TRABECTEDIN
     Route: 042
  4. TRABECTEDIN [Suspect]
     Active Substance: TRABECTEDIN
     Indication: OVARIAN CANCER
     Route: 042
     Dates: start: 20180214, end: 20180214
  5. SOLDESAM [Concomitant]
     Active Substance: DEXAMETHASONE
     Dosage: 32 DROPS
     Route: 048
     Dates: start: 20180217, end: 20180218
  6. SOLDESAM [Concomitant]
     Active Substance: DEXAMETHASONE
     Dosage: 64 DROPS
     Route: 048
     Dates: start: 20180215, end: 20180216
  7. ONDANSETRON [Concomitant]
     Active Substance: ONDANSETRON
     Route: 048
     Dates: start: 20180215, end: 20180216
  8. BIOTAD [Concomitant]
     Route: 048

REACTIONS (5)
  - Febrile neutropenia [Not Recovered/Not Resolved]
  - Anaemia [Recovering/Resolving]
  - Platelet count decreased [Recovering/Resolving]
  - Transaminases increased [Recovering/Resolving]
  - Septic shock [Fatal]

NARRATIVE: CASE EVENT DATE: 20180227
